FAERS Safety Report 9449699 (Version 1)
Quarter: 2013Q3

REPORT INFORMATION
  Report Type: Spontaneous
  Country: BR (occurrence: BR)
  Receive Date: 20130809
  Receipt Date: 20130809
  Transmission Date: 20140515
  Serious: Yes (Hospitalization)
  Sender: FDA-Public Use
  Company Number: BR-SANOFI-AVENTIS-2013SA077690

PATIENT
  Age: 67 Year
  Sex: Female
  Weight: 82 kg

DRUGS (6)
  1. LANTUS [Suspect]
     Indication: TYPE 2 DIABETES MELLITUS
     Route: 058
     Dates: start: 201305
  2. CLIKSTAR [Concomitant]
     Indication: DEVICE THERAPY
     Dates: start: 2013
  3. PIOGLITAZONE HYDROCHLORIDE [Concomitant]
     Indication: TYPE 2 DIABETES MELLITUS
     Route: 048
     Dates: start: 20130723
  4. SIMVASTATIN [Concomitant]
     Indication: BLOOD DISORDER
     Route: 048
  5. CELECOXIB [Concomitant]
     Indication: CARDIOVASCULAR DISORDER
     Route: 048
  6. AAS INFANTIL [Concomitant]
     Indication: BLOOD DISORDER
     Route: 048

REACTIONS (5)
  - Peripheral vascular disorder [Recovered/Resolved]
  - Hypoaesthesia [Recovered/Resolved]
  - Hyperglycaemia [Recovered/Resolved]
  - Thirst [Recovered/Resolved]
  - Dry mouth [Recovered/Resolved]
